FAERS Safety Report 23472565 (Version 1)
Quarter: 2024Q1

REPORT INFORMATION
  Report Type: Spontaneous
  Country: US (occurrence: US)
  Receive Date: 20240202
  Receipt Date: 20240202
  Transmission Date: 20240410
  Serious: Yes (Hospitalization, Other)
  Sender: FDA-Public Use
  Company Number: US-GLAXOSMITHKLINE-US2024GSK014255

PATIENT

DRUGS (2)
  1. VALACYCLOVIR [Suspect]
     Active Substance: VALACYCLOVIR HYDROCHLORIDE
     Indication: Herpes zoster
     Dosage: 1 G, TID
  2. ACETAMINOPHEN\HYDROCODONE [Concomitant]
     Active Substance: ACETAMINOPHEN\HYDROCODONE
     Indication: Herpes zoster
     Dosage: 5 MG/325 MG EVERY 6 HOURS AS NEEDED

REACTIONS (11)
  - Neurotoxicity [Recovering/Resolving]
  - Muscular weakness [Recovering/Resolving]
  - Gait disturbance [Recovering/Resolving]
  - Tremor [Recovering/Resolving]
  - Muscle spasticity [Recovering/Resolving]
  - Dysarthria [Recovering/Resolving]
  - Coordination abnormal [Recovering/Resolving]
  - Dysdiadochokinesis [Recovering/Resolving]
  - Cerebellar syndrome [Recovering/Resolving]
  - Anticoagulation drug level above therapeutic [Recovering/Resolving]
  - Prescribed overdose [Unknown]
